FAERS Safety Report 17224664 (Version 1)
Quarter: 2019Q4

REPORT INFORMATION
  Report Type: Spontaneous
  Country: US (occurrence: US)
  Receive Date: 20191209
  Receipt Date: 20191209
  Transmission Date: 20200122
  Serious: Yes (Hospitalization)
  Sender: FDA-Public Use
  Company Number: None

PATIENT
  Age: 72 Year
  Sex: Female
  Weight: 55.79 kg

DRUGS (1)
  1. RANITIDINE 75MG TABLET [Suspect]
     Active Substance: RANITIDINE
     Indication: GASTROOESOPHAGEAL REFLUX DISEASE
     Dosage: ?          QUANTITY:1 DF DOSAGE FORM;?
     Route: 048
     Dates: start: 20140101, end: 20190920

REACTIONS (8)
  - Nausea [None]
  - Amylase increased [None]
  - Lipase increased [None]
  - Abdominal distension [None]
  - Diarrhoea [None]
  - Pain [None]
  - Abdominal discomfort [None]
  - Duodenal ulcer [None]

NARRATIVE: CASE EVENT DATE: 20190922
